FAERS Safety Report 4926031-0 (Version None)
Quarter: 2006Q1

REPORT INFORMATION
  Report Type: 
  Country: None (occurrence: None)
  Receive Date: 20060228
  Receipt Date: 20050729
  Transmission Date: 20060701
  Serious: No
  Sender: FDA-Public Use
  Company Number: US-GLAXOSMITHKLINE-A0568286A

PATIENT
  Age: 28 Year
  Sex: Female

DRUGS (3)
  1. LAMICTAL [Suspect]
     Indication: BIPOLAR DISORDER
     Dosage: 25MG TWICE PER DAY
     Route: 048
     Dates: end: 20050728
  2. PROZAC [Concomitant]
  3. SEROQUEL [Concomitant]

REACTIONS (5)
  - IRRITABILITY [None]
  - MUSCLE TWITCHING [None]
  - PARAESTHESIA [None]
  - RASH [None]
  - RASH ERYTHEMATOUS [None]
